FAERS Safety Report 9449972 (Version 1)
Quarter: 2013Q3

REPORT INFORMATION
  Report Type: Spontaneous
  Country: US (occurrence: US)
  Receive Date: 20130809
  Receipt Date: 20130809
  Transmission Date: 20140515
  Serious: Yes (Other)
  Sender: FDA-Public Use
  Company Number: US-BAUSCH-BL-2013-004446

PATIENT
  Age: 85 Year
  Sex: Male

DRUGS (3)
  1. BESIVANCE (BESIFLOXACIN OPHTHALMIC SUSPENSION) 0.6% [Suspect]
     Indication: INTRAOCULAR LENS IMPLANT
     Dosage: 1 DROP; FOUR TIMES A DAY; RIGHT EYE
     Route: 047
     Dates: start: 20130709, end: 20130718
  2. DUREZOL [Concomitant]
     Indication: PRODUCT USED FOR UNKNOWN INDICATION
     Dosage: 1 DROP; FOUR TIMES A DAY; RIGHT EYE
     Route: 047
  3. BROMDAY 0.09% [Concomitant]
     Indication: PRODUCT USED FOR UNKNOWN INDICATION
     Dosage: 1 DROP; ONCE DAILY; RIGHT EYE
     Route: 047

REACTIONS (5)
  - Off label use [Unknown]
  - Keratopathy [Unknown]
  - Corneal dystrophy [Unknown]
  - Corneal disorder [Unknown]
  - Corneal epithelium defect [Unknown]
